FAERS Safety Report 14461451 (Version 2)
Quarter: 2018Q1

REPORT INFORMATION
  Report Type: Report from Study
  Country: None (occurrence: US)
  Receive Date: 20180130
  Receipt Date: 20180212
  Transmission Date: 20180509
  Serious: Yes (Hospitalization, Other)
  Sender: FDA-Public Use
  Company Number: US-ABBVIE-18K-163-2233718-00

PATIENT
  Age: 63 Year
  Sex: Male
  Weight: 75.82 kg

DRUGS (3)
  1. HUMIRA [Suspect]
     Active Substance: ADALIMUMAB
     Route: 058
     Dates: start: 201704, end: 201704
  2. HUMIRA [Suspect]
     Active Substance: ADALIMUMAB
     Route: 058
     Dates: start: 201705, end: 20171101
  3. HUMIRA [Suspect]
     Active Substance: ADALIMUMAB
     Indication: COLITIS ULCERATIVE
     Route: 058
     Dates: start: 20170407, end: 20170407

REACTIONS (8)
  - Arrhythmia [Unknown]
  - Sinusitis [Recovering/Resolving]
  - Coronary artery occlusion [Unknown]
  - Thrombosis [Recovering/Resolving]
  - Palpitations [Recovering/Resolving]
  - Rash [Recovered/Resolved]
  - Bronchitis [Recovering/Resolving]
  - Ear infection [Recovering/Resolving]

NARRATIVE: CASE EVENT DATE: 201711
